FAERS Safety Report 8232772-2 (Version None)
Quarter: 2012Q1

REPORT INFORMATION
  Report Type: 
  Country: None (occurrence: None)
  Receive Date: 20120323
  Receipt Date: 20120320
  Transmission Date: 20120608
  Serious: Yes (Hospitalization)
  Sender: FDA-Public Use
  Company Number: US-MERCK-1109USA02132

PATIENT
  Age: 72 Year
  Sex: Female
  Weight: 55 kg

DRUGS (2)
  1. FOSAMAX [Suspect]
     Route: 048
     Dates: start: 20040301, end: 20060601
  2. ASCORBIC ACID [Concomitant]
     Route: 065
     Dates: start: 19720101

REACTIONS (4)
  - FALL [None]
  - LOW TURNOVER OSTEOPATHY [None]
  - FEMORAL NECK FRACTURE [None]
  - BLOOD CHOLESTEROL INCREASED [None]
